FAERS Safety Report 8294452-7 (Version None)
Quarter: 2012Q2

REPORT INFORMATION
  Report Type: 
  Country: None (occurrence: None)
  Receive Date: 20120418
  Receipt Date: 20120412
  Transmission Date: 20120825
  Serious: Yes (Other)
  Sender: FDA-Public Use
  Company Number: PHHY2012FR031061

PATIENT
  Age: 31 Year
  Sex: Female

DRUGS (4)
  1. HALOPERIDOL [Suspect]
     Dosage: 15 MG, UNK
     Route: 042
  2. LOXAPINE [Suspect]
     Dosage: 50 MG, TID
     Route: 030
  3. CLORAZEPATE DIPOTASSIUM [Suspect]
     Dosage: 50 MG, UNK
     Route: 042
  4. CLONAZEPAM [Suspect]
     Dosage: 1 MG, UNK
     Route: 042

REACTIONS (10)
  - AGITATION [None]
  - HYPERTHERMIA [None]
  - HYPERHIDROSIS [None]
  - TREMOR [None]
  - CONFUSIONAL STATE [None]
  - NEUROLEPTIC MALIGNANT SYNDROME [None]
  - SINUS TACHYCARDIA [None]
  - OBSESSIVE THOUGHTS [None]
  - RHABDOMYOLYSIS [None]
  - MUSCLE RIGIDITY [None]
